FAERS Safety Report 9015897 (Version 1)
Quarter: 2013Q1

REPORT INFORMATION
  Report Type: Report from Study
  Country: BR (occurrence: BR)
  Receive Date: 20130116
  Receipt Date: 20130116
  Transmission Date: 20140127
  Serious: Yes (Other)
  Sender: FDA-Public Use
  Company Number: BR-AMGEN-BRACT2011024013

PATIENT
  Age: 69 Year
  Sex: Female
  Weight: 85 kg

DRUGS (6)
  1. ETANERCEPT [Suspect]
     Indication: RHEUMATOID ARTHRITIS
     Dosage: 50 MG, ONCE WEEKLY
     Route: 058
     Dates: start: 201005, end: 201105
  2. METICORTEN [Concomitant]
     Dosage: UNK
  3. FOLIC ACID [Concomitant]
     Dosage: UNK
  4. TYLENOL /00020001/ [Concomitant]
     Indication: PAIN
     Dosage: UNSPECIFIED DOSE, AS NEEDED (IF PRESENTED WITH PAIN)
  5. PREDNISONE [Concomitant]
     Dosage: UNK
  6. RISEDRONATE SODIUM [Concomitant]
     Dosage: UNK

REACTIONS (4)
  - Breast mass [Unknown]
  - Neoplasm malignant [Unknown]
  - Abdominal mass [Unknown]
  - Axillary mass [Unknown]
